FAERS Safety Report 7903508-7 (Version None)
Quarter: 2011Q4

REPORT INFORMATION
  Report Type: 
  Country: None (occurrence: None)
  Receive Date: 20111107
  Receipt Date: 20111031
  Transmission Date: 20120403
  Serious: Yes (Other)
  Sender: FDA-Public Use
  Company Number: ACO_26323_2011

PATIENT
  Age: 65 Year
  Sex: Male
  Weight: 110.6777 kg

DRUGS (6)
  1. PRAMIPEXOLE DIHYCHLLORIDE [Concomitant]
  2. LIPITOR [Concomitant]
  3. CRESTOR [Concomitant]
  4. AMPYRA [Suspect]
     Indication: GAIT DISTURBANCE
     Dosage: 10 MG, BID
     Dates: start: 20110401
  5. AVONEX [Suspect]
     Indication: MULTIPLE SCLEROSIS
     Dosage: 30 UG, WEEKLY, INTRAMUSCULAR
     Route: 030
     Dates: start: 20110601
  6. SOLU-MEDROL [Concomitant]

REACTIONS (3)
  - ABASIA [None]
  - ASTHENIA [None]
  - FALL [None]
